FAERS Safety Report 23444734 (Version 2)
Quarter: 2024Q1

REPORT INFORMATION
  Report Type: Spontaneous
  Country: US (occurrence: US)
  Receive Date: 20240125
  Receipt Date: 20240227
  Transmission Date: 20240410
  Serious: No
  Sender: FDA-Public Use
  Company Number: US-INCYTE CORPORATION-2024IN000651

PATIENT

DRUGS (1)
  1. JAKAFI [Suspect]
     Active Substance: RUXOLITINIB
     Indication: Acute myeloid leukaemia
     Dosage: 10 MILLIGRAM, BID
     Route: 048
     Dates: start: 202312

REACTIONS (5)
  - Diarrhoea [Unknown]
  - Fatigue [Recovering/Resolving]
  - Stomatitis [Unknown]
  - Mouth ulceration [Unknown]
  - Off label use [Unknown]

NARRATIVE: CASE EVENT DATE: 20231201
